FAERS Safety Report 17260341 (Version 1)
Quarter: 2020Q1

REPORT INFORMATION
  Report Type: Spontaneous
  Country: US (occurrence: US)
  Receive Date: 20200112
  Receipt Date: 20200112
  Transmission Date: 20200409
  Serious: No
  Sender: FDA-Public Use
  Company Number: US-ASTRAZENECA-2019SF82584

PATIENT
  Age: 34 Year
  Sex: Female

DRUGS (1)
  1. BYDUREON [Suspect]
     Active Substance: EXENATIDE
     Indication: DIABETES MELLITUS
     Route: 065

REACTIONS (6)
  - Device issue [Unknown]
  - Injection site discolouration [Unknown]
  - Product dose omission [Unknown]
  - Hyperhidrosis [Unknown]
  - Injection site mass [Unknown]
  - Tremor [Unknown]
